FAERS Safety Report 24969026 (Version 1)
Quarter: 2025Q1

REPORT INFORMATION
  Report Type: Report from Study
  Country: US (occurrence: US)
  Receive Date: 20250214
  Receipt Date: 20250214
  Transmission Date: 20250409
  Serious: Yes (Other)
  Sender: AMNEAL
  Company Number: US-AMNEAL PHARMACEUTICALS-2024-AMRX-04492

PATIENT
  Sex: Male
  Weight: 61.678 kg

DRUGS (5)
  1. CARBIDOPA\LEVODOPA [Suspect]
     Active Substance: CARBIDOPA\LEVODOPA
     Indication: Parkinson^s disease
     Dosage: 61.25-245 MG TAKE 2 CAPSULES, THREE TIMES A DAY  AND 36.25-145MG TAKE 1 CAPSULE, THREE TIMES A DAY
     Route: 048
     Dates: start: 20221017
  2. CARBIDOPA\LEVODOPA [Suspect]
     Active Substance: CARBIDOPA\LEVODOPA
     Dosage: 48.75.25-195MG, 1 CAPSULES, 3 /DAY
     Route: 048
     Dates: start: 2020
  3. CARBIDOPA\LEVODOPA [Suspect]
     Active Substance: CARBIDOPA\LEVODOPA
     Dosage: 245 MG, 2 CAPSULES AND TAKE 95 MG, 1 CAPSULE, 3 /DAY
     Route: 048
  4. RIVASTIGMINE [Concomitant]
     Active Substance: RIVASTIGMINE
     Indication: Product used for unknown indication
     Dosage: 1.5 MILLIGRAM, 1 CAP IN AM AND 2 CAPS NIGHTLY, 2 /DAY
     Route: 048
  5. GALANTAMINE [Concomitant]
     Active Substance: GALANTAMINE
     Indication: Product used for unknown indication
     Route: 065

REACTIONS (14)
  - Hallucination [Not Recovered/Not Resolved]
  - Rapid eye movement sleep behaviour disorder [Unknown]
  - Restlessness [Unknown]
  - Freezing phenomenon [Unknown]
  - Blood pressure fluctuation [Not Recovered/Not Resolved]
  - Amnesia [Not Recovered/Not Resolved]
  - Hyposmia [Unknown]
  - Dysphonia [Unknown]
  - Dysphagia [Unknown]
  - Fall [Unknown]
  - Gait disturbance [Unknown]
  - Constipation [Unknown]
  - Dizziness [Unknown]
  - Product substitution issue [Unknown]
